FAERS Safety Report 7642180-0 (Version None)
Quarter: 2011Q3

REPORT INFORMATION
  Report Type: 
  Country: None (occurrence: None)
  Receive Date: 20110728
  Receipt Date: 20110720
  Transmission Date: 20111222
  Serious: Yes (Hospitalization)
  Sender: FDA-Public Use
  Company Number: CHPA2011FR09644

PATIENT
  Sex: Female

DRUGS (4)
  1. DIPROSONE [Concomitant]
     Indication: RASH ERYTHEMATOUS
     Dosage: UNK, UNK
     Route: 065
     Dates: start: 20110104
  2. LAMISIL [Suspect]
     Indication: RASH ERYTHEMATOUS
     Dosage: UNK, UNK
     Route: 003
     Dates: start: 20110104, end: 20110127
  3. PYOSTACINE [Concomitant]
     Dosage: UNK, UNK
     Route: 065
     Dates: start: 20101215
  4. DUODERM                                 /DOM/ [Concomitant]
     Dosage: UNK, UNK
     Route: 061

REACTIONS (5)
  - INSOMNIA [None]
  - DRUG ERUPTION [None]
  - ALLERGY TEST POSITIVE [None]
  - SCAR [None]
  - PRURITUS [None]
